FAERS Safety Report 11461329 (Version 1)
Quarter: 2015Q3

REPORT INFORMATION
  Report Type: Spontaneous
  Country: US (occurrence: US)
  Receive Date: 20150831
  Receipt Date: 20150831
  Transmission Date: 20151125
  Serious: No
  Sender: FDA-Public Use
  Company Number: US-ELI_LILLY_AND_COMPANY-US201007004921

PATIENT
  Age: 49 Year
  Sex: Female

DRUGS (3)
  1. CYMBALTA [Suspect]
     Active Substance: DULOXETINE HYDROCHLORIDE
     Indication: BONE PAIN
     Dosage: 20 MG, DAILY (1/D)
     Dates: start: 20100719, end: 20100719
  2. WARFARIN [Concomitant]
     Active Substance: WARFARIN
     Dosage: 6 MG, UNK
  3. LORAZEPAM. [Concomitant]
     Active Substance: LORAZEPAM

REACTIONS (9)
  - Panic attack [Recovered/Resolved]
  - Headache [Not Recovered/Not Resolved]
  - Dysgeusia [Not Recovered/Not Resolved]
  - Autophony [Recovered/Resolved]
  - Off label use [Recovered/Resolved]
  - Nausea [Not Recovered/Not Resolved]
  - Dry mouth [Not Recovered/Not Resolved]
  - Somnolence [Recovered/Resolved]
  - Decreased appetite [Not Recovered/Not Resolved]

NARRATIVE: CASE EVENT DATE: 201007
